FAERS Safety Report 24326642 (Version 9)
Quarter: 2024Q4

REPORT INFORMATION
  Report Type: Report from Study
  Country: US (occurrence: US)
  Receive Date: 20240917
  Receipt Date: 20241217
  Transmission Date: 20250114
  Serious: Yes (Other)
  Sender: SANDOZ
  Company Number: US-SANDOZ-SDZ2024US010795

PATIENT
  Sex: Female
  Weight: 46.259 kg

DRUGS (21)
  1. TREPROSTINIL [Suspect]
     Active Substance: TREPROSTINIL
     Dosage: 120 NG/KG/MIN, CONT
     Route: 058
  2. TREPROSTINIL [Suspect]
     Active Substance: TREPROSTINIL
     Dosage: 73.25 NG/KG/MIN
     Route: 058
     Dates: start: 20240119
  3. TREPROSTINIL [Suspect]
     Active Substance: TREPROSTINIL
     Dosage: 98.75 NG/KG/MIN, CONT
     Route: 058
     Dates: start: 20240119
  4. TREPROSTINIL [Suspect]
     Active Substance: TREPROSTINIL
     Dosage: 58.5 NG/KG/MIN, CONT
     Route: 058
     Dates: start: 20240119
  5. TREPROSTINIL [Suspect]
     Active Substance: TREPROSTINIL
     Indication: Pulmonary arterial hypertension
     Dosage: 2 NG/KG/ MIN
     Route: 058
     Dates: start: 20240119
  6. TREPROSTINIL [Suspect]
     Active Substance: TREPROSTINIL
     Dosage: UNK (6 NG/KG/MIN)
     Route: 058
     Dates: start: 20240119
  7. ASPIRIN [Concomitant]
     Active Substance: ASPIRIN
     Indication: Product used for unknown indication
     Dosage: UNK
     Route: 065
  8. BENADRYL [Concomitant]
     Active Substance: DIPHENHYDRAMINE HYDROCHLORIDE
     Indication: Product used for unknown indication
     Dosage: UNK
     Route: 065
  9. CLARITIN [Concomitant]
     Active Substance: LORATADINE
     Indication: Product used for unknown indication
     Dosage: UNK
     Route: 065
  10. EPINEPHRINE [Concomitant]
     Active Substance: EPINEPHRINE
     Indication: Product used for unknown indication
     Dosage: UNK
     Route: 065
  11. FAMOTIDINE [Concomitant]
     Active Substance: FAMOTIDINE
     Indication: Product used for unknown indication
     Dosage: UNK
     Route: 065
  12. LANSOPRAZOLE [Concomitant]
     Active Substance: LANSOPRAZOLE
     Indication: Product used for unknown indication
     Dosage: UNK
     Route: 065
  13. LETAIRIS [Concomitant]
     Active Substance: AMBRISENTAN
     Indication: Product used for unknown indication
     Dosage: UNK
     Route: 065
  14. LEVALBUTEROL TARTRATE [Concomitant]
     Active Substance: LEVALBUTEROL TARTRATE
     Indication: Product used for unknown indication
     Dosage: UNK
     Route: 065
  15. MINERALS\VITAMINS [Concomitant]
     Active Substance: MINERALS\VITAMINS
     Indication: Product used for unknown indication
     Dosage: UNK
     Route: 065
  16. QVAR REDIHALER [Concomitant]
     Active Substance: BECLOMETHASONE DIPROPIONATE
     Indication: Product used for unknown indication
     Dosage: UNK
     Route: 065
  17. REMODULIN [Concomitant]
     Active Substance: TREPROSTINIL
     Indication: Product used for unknown indication
     Dosage: UNK
     Route: 065
  18. TADALAFIL [Concomitant]
     Active Substance: TADALAFIL
     Indication: Product used for unknown indication
     Dosage: UNK
     Route: 065
  19. TYVASO [Concomitant]
     Active Substance: TREPROSTINIL
     Indication: Product used for unknown indication
     Dosage: UNK (USING 32MCG CARTRIDGES 2 TIMES TO MAKE 64 MCG FOUR TIMES A DAY)
     Route: 065
  20. WINREVAIR [Concomitant]
     Active Substance: SOTATERCEPT-CSRK
     Indication: Product used for unknown indication
     Dosage: UNK
     Route: 065
  21. ZYRTEC [Concomitant]
     Active Substance: CETIRIZINE HYDROCHLORIDE
     Indication: Product used for unknown indication
     Dosage: UNK
     Route: 065

REACTIONS (29)
  - Epistaxis [Unknown]
  - Platelet count decreased [Unknown]
  - Cough [Unknown]
  - Injection site infection [Unknown]
  - Injection site pruritus [Unknown]
  - Injection site discharge [Unknown]
  - Injection site inflammation [Unknown]
  - Dyspepsia [Unknown]
  - Heart rate decreased [Unknown]
  - Adverse reaction [Unknown]
  - Pain [Unknown]
  - Skin exfoliation [Unknown]
  - Drug hypersensitivity [Unknown]
  - Skin disorder [Unknown]
  - Vomiting [Unknown]
  - Dyspnoea [Unknown]
  - Injection site pain [Unknown]
  - Injection site erythema [Unknown]
  - Injection site reaction [Unknown]
  - Injection site discomfort [Unknown]
  - Gastrointestinal pain [Unknown]
  - Injection site hypersensitivity [Unknown]
  - Diarrhoea [Not Recovered/Not Resolved]
  - Injection site urticaria [Unknown]
  - Pruritus [Unknown]
  - Haemoglobin abnormal [Unknown]
  - Circumstance or information capable of leading to medication error [Unknown]
  - Product contamination physical [Unknown]
  - Product substitution issue [Unknown]
